FAERS Safety Report 19122734 (Version 1)
Quarter: 2021Q2

REPORT INFORMATION
  Report Type: Spontaneous
  Country: GB (occurrence: GB)
  Receive Date: 20210412
  Receipt Date: 20210412
  Transmission Date: 20210717
  Serious: Yes (Other)
  Sender: FDA-Public Use
  Company Number: GB-MYLANLABS-2021M1021228

PATIENT
  Age: 48 Year
  Sex: Female
  Weight: 92.07 kg

DRUGS (3)
  1. FLUOXETINE [Suspect]
     Active Substance: FLUOXETINE HYDROCHLORIDE
     Indication: DEPRESSION
     Dosage: UNK(20)
     Route: 048
  2. FLUOXETINE [Suspect]
     Active Substance: FLUOXETINE HYDROCHLORIDE
     Indication: ILL-DEFINED DISORDER
  3. FLUOXETINE [Suspect]
     Active Substance: FLUOXETINE HYDROCHLORIDE
     Indication: MENOPAUSE

REACTIONS (7)
  - Hypervigilance [Unknown]
  - Agitation [Unknown]
  - Lacrimation increased [Unknown]
  - Feeling cold [Unknown]
  - Time perception altered [Unknown]
  - Paranoia [Unknown]
  - Restlessness [Unknown]

NARRATIVE: CASE EVENT DATE: 20210331
